FAERS Safety Report 8065207-3 (Version None)
Quarter: 2012Q1

REPORT INFORMATION
  Report Type: 
  Country: None (occurrence: None)
  Receive Date: 20120117
  Receipt Date: 20120102
  Transmission Date: 20120608
  Serious: Yes (Hospitalization)
  Sender: FDA-Public Use
  Company Number: DE-1188691

PATIENT
  Age: 16 Year
  Sex: Female

DRUGS (1)
  1. CYCLOPENTOLATE HYDROCHLORIDE [Suspect]
     Indication: CYCLOPLEGIC REFRACTION
     Dosage: 1 GTT 3X/10 MINUTES OU, OPHTHALMIC
     Route: 047
     Dates: start: 20111014, end: 20111014

REACTIONS (9)
  - RASH PUSTULAR [None]
  - DIZZINESS [None]
  - HYPERSENSITIVITY [None]
  - RASH [None]
  - DYSPNOEA [None]
  - ERYTHEMA [None]
  - FEELING HOT [None]
  - PYREXIA [None]
  - NAUSEA [None]
